FAERS Safety Report 7004878-7 (Version None)
Quarter: 2010Q3

REPORT INFORMATION
  Report Type: 
  Country: None (occurrence: None)
  Receive Date: 20100917
  Receipt Date: 20100904
  Transmission Date: 20110219
  Serious: Yes (Life-Threatening, Other)
  Sender: FDA-Public Use
  Company Number: 2010AP001905

PATIENT
  Age: 30 Year
  Sex: Male

DRUGS (4)
  1. SERTRALINE HYDROCHLORIDE [Suspect]
     Indication: MAJOR DEPRESSION
     Dosage: 200 MG;
  2. MIRTAZAPINE [Suspect]
     Dosage: 15 MG; QD, 30 MG; QD
  3. SERTRALINE HYDROCHLORIDE [Concomitant]
  4. QUETIAPINE [Concomitant]

REACTIONS (2)
  - DELIRIUM [None]
  - SEROTONIN SYNDROME [None]
